FAERS Safety Report 14531670 (Version 1)
Quarter: 2018Q1

REPORT INFORMATION
  Report Type: Spontaneous
  Country: DE (occurrence: DE)
  Receive Date: 20180214
  Receipt Date: 20180214
  Transmission Date: 20180509
  Serious: Yes (Death)
  Sender: FDA-Public Use
  Company Number: DE-PFIZER INC-2017464449

PATIENT
  Age: 82 Year
  Sex: Female

DRUGS (2)
  1. IBRANCE [Suspect]
     Active Substance: PALBOCICLIB
     Dosage: 125 MG, CYCLIC (FIRST CYCLE = 3 WEEKS)
     Dates: start: 201710
  2. FASLODEX [Concomitant]
     Active Substance: FULVESTRANT
     Dosage: UNK

REACTIONS (11)
  - B-lymphocyte count decreased [Unknown]
  - White blood cell count decreased [Unknown]
  - Vomiting [Unknown]
  - Fatigue [Unknown]
  - Malaise [Unknown]
  - Decreased interest [Unknown]
  - Decreased appetite [Unknown]
  - Feeling cold [Unknown]
  - Agitation [Unknown]
  - Myocardial infarction [Fatal]
  - Hyperacusis [Unknown]

NARRATIVE: CASE EVENT DATE: 201710
